FAERS Safety Report 7887729-8 (Version None)
Quarter: 2011Q4

REPORT INFORMATION
  Report Type: 
  Country: None (occurrence: None)
  Receive Date: 20111103
  Receipt Date: 20111024
  Transmission Date: 20120403
  Serious: Yes (Hospitalization, Other)
  Sender: FDA-Public Use
  Company Number: JP-AMGEN-JPNSP2010004131

PATIENT
  Age: 62 Year
  Sex: Male
  Weight: 57.1 kg

DRUGS (12)
  1. PREDNISOLONE [Concomitant]
     Indication: INFLAMMATION
     Dosage: 5 MG, 1X/DAY
     Route: 048
     Dates: start: 19840101
  2. LOXONIN [Concomitant]
     Indication: INFLAMMATION
     Dosage: 120 MG, 1X/DAY
     Route: 048
     Dates: start: 20000101
  3. SELBEX [Concomitant]
     Indication: PROPHYLAXIS AGAINST GASTROINTESTINAL ULCER
     Dosage: 150 MG, 1X/DAY
     Route: 048
     Dates: start: 20020430, end: 20101110
  4. ALFACALCIDOL [Concomitant]
     Indication: OSTEOPOROSIS PROPHYLAXIS
     Dosage: UNK
     Route: 048
     Dates: start: 20020430, end: 20101110
  5. RIMATIL [Suspect]
     Indication: RHEUMATOID ARTHRITIS
     Dosage: 100 MG, 2X/DAY
     Route: 048
     Dates: start: 19840101, end: 20101102
  6. KETOPROFEN [Concomitant]
     Indication: ANALGESIC THERAPY
     Dosage: UNK
     Route: 062
  7. ALINAMIN F [Concomitant]
     Indication: FATIGUE
     Dosage: 75 MG, 1X/DAY
     Route: 048
     Dates: start: 20040608, end: 20101110
  8. VITAMIN D [Concomitant]
     Dosage: UNK
  9. HUMIRA [Suspect]
     Indication: RHEUMATOID ARTHRITIS
     Dosage: UNK
     Route: 058
     Dates: start: 20081127, end: 20100628
  10. VOLTAREN [Concomitant]
     Indication: ANALGESIC THERAPY
     Dosage: UNK
  11. ENBREL [Suspect]
     Indication: RHEUMATOID ARTHRITIS
     Dosage: 25 MG, 2X/WEEK
     Route: 058
     Dates: start: 20100629, end: 20101102
  12. TAGAMET                            /00397401/ [Concomitant]
     Indication: PROPHYLAXIS AGAINST GASTROINTESTINAL ULCER
     Dosage: 600 MG, 1X/DAY
     Route: 048
     Dates: start: 20020430, end: 20101110

REACTIONS (9)
  - LOSS OF CONSCIOUSNESS [None]
  - APLASTIC ANAEMIA [None]
  - INJURY [None]
  - PYREXIA [None]
  - PANCYTOPENIA [None]
  - INFECTION [None]
  - BIRTH MARK [None]
  - FALL [None]
  - CONTUSION [None]
